FAERS Safety Report 9407515 (Version 2)
Quarter: 2013Q3

REPORT INFORMATION
  Report Type: Report from Study
  Country: US (occurrence: US)
  Receive Date: 20130718
  Receipt Date: 20130730
  Transmission Date: 20140515
  Serious: Yes (Hospitalization)
  Sender: FDA-Public Use
  Company Number: US-JNJFOC-20130708267

PATIENT
  Age: 32 Year
  Sex: Female
  Weight: 66.68 kg

DRUGS (2)
  1. USTEKINUMAB [Suspect]
     Indication: PSORIASIS
     Route: 058
     Dates: start: 201106, end: 201110
  2. TACLONEX [Concomitant]

REACTIONS (2)
  - Ruptured ectopic pregnancy [Recovered/Resolved]
  - Maternal exposure before pregnancy [Unknown]
